FAERS Safety Report 12305362 (Version 1)
Quarter: 2016Q2

REPORT INFORMATION
  Report Type: Spontaneous
  Country: US (occurrence: None)
  Receive Date: 20160425
  Receipt Date: 20160425
  Transmission Date: 20160815
  Serious: No
  Sender: FDA-Public Use
  Company Number: None

PATIENT
  Age: 51 Year
  Sex: Male

DRUGS (6)
  1. CAMPTOSAR [Concomitant]
     Active Substance: IRINOTECAN HYDROCHLORIDE
  2. FLUOROURACIL. [Concomitant]
     Active Substance: FLUOROURACIL
  3. LEUCOVOR [Concomitant]
  4. OXYCODONE [Concomitant]
     Active Substance: OXYCODONE
  5. ENOXAPARIN 120MG [Suspect]
     Active Substance: ENOXAPARIN
     Dates: start: 20160325
  6. COMPAZINE [Concomitant]
     Active Substance: PROCHLORPERAZINE MALEATE

REACTIONS (1)
  - Small intestinal obstruction [None]
